FAERS Safety Report 8757731 (Version 3)
Quarter: 2013Q4

REPORT INFORMATION
  Report Type: Spontaneous
  Country: JP (occurrence: JP)
  Receive Date: 20120828
  Receipt Date: 20131031
  Transmission Date: 20140711
  Serious: Yes (Other)
  Sender: FDA-Public Use
  Company Number: JP-009507513-1203USA03101

PATIENT
  Age: 67 Year
  Sex: Female

DRUGS (2)
  1. FOSAMAX [Suspect]
     Indication: METASTASES TO BONE
     Dosage: DAILY DOSAGE UNKNOWN
     Route: 048
  2. ZOLEDRONIC ACID [Suspect]
     Indication: METASTASES TO BONE
     Dosage: DAILY DOSAGE UNKNOWNS
     Route: 042

REACTIONS (1)
  - Femur fracture [Unknown]
